FAERS Safety Report 5081608-X (Version None)
Quarter: 2006Q3

REPORT INFORMATION
  Report Type: 
  Country: None (occurrence: None)
  Receive Date: 20060811
  Receipt Date: 20060803
  Transmission Date: 20061208
  Serious: Yes (Hospitalization)
  Sender: FDA-Public Use
  Company Number: 2006-04345

PATIENT
  Age: 68 Year
  Sex: Male

DRUGS (3)
  1. VECURONIUM BROMIDE (WATSON LABORATORIES) (VECURONIUM BROMIDE) INJECTIO [Suspect]
     Indication: GASTRECTOMY
  2. FENTANYL CITRATE [Suspect]
     Indication: GASTRECTOMY
  3. PROPOFOL [Suspect]
     Indication: GASTRECTOMY

REACTIONS (1)
  - VENTRICULAR TACHYCARDIA [None]
